FAERS Safety Report 23332659 (Version 1)
Quarter: 2023Q4

REPORT INFORMATION
  Report Type: Spontaneous
  Country: US (occurrence: US)
  Receive Date: 20231222
  Receipt Date: 20231222
  Transmission Date: 20240109
  Serious: No
  Sender: FDA-Public Use
  Company Number: US-CTI BIOPHARMA-2023US04070

PATIENT

DRUGS (1)
  1. VONJO [Suspect]
     Active Substance: PACRITINIB
     Indication: Myelofibrosis
     Dosage: 200 MG, BID, 200MG IN MORNING AND 100MG IN EVENING
     Route: 048
     Dates: start: 20230308

REACTIONS (2)
  - Micturition urgency [Not Recovered/Not Resolved]
  - Diarrhoea [Not Recovered/Not Resolved]
